FAERS Safety Report 8069780-0 (Version None)
Quarter: 2012Q1

REPORT INFORMATION
  Report Type: 
  Country: None (occurrence: None)
  Receive Date: 20120125
  Receipt Date: 20120123
  Transmission Date: 20120608
  Serious: Yes (Other)
  Sender: FDA-Public Use
  Company Number: CH-PFIZER INC-2011312419

PATIENT
  Age: 70 Year
  Sex: Female

DRUGS (4)
  1. BISOPROLOL FUMARATE [Concomitant]
     Dosage: 2.5 MG, 1X/DAY (HALF OF A 5 MG TABLET)
     Route: 048
  2. LYRICA [Suspect]
     Dosage: 150 MG, 3X/DAY
     Route: 048
     Dates: start: 20111115
  3. CYMBALTA [Concomitant]
     Dosage: 90 MG, 1X/DAY
     Route: 048
  4. ABILIFY [Concomitant]
     Dosage: 15 MG, 1X/DAY
     Route: 048

REACTIONS (4)
  - OEDEMA [None]
  - FACE OEDEMA [None]
  - OEDEMA PERIPHERAL [None]
  - PULMONARY OEDEMA [None]
